FAERS Safety Report 9426014 (Version 1)
Quarter: 2013Q3

REPORT INFORMATION
  Report Type: Report from Study
  Country: GB (occurrence: GB)
  Receive Date: 20130730
  Receipt Date: 20130730
  Transmission Date: 20140515
  Serious: Yes (Hospitalization)
  Sender: FDA-Public Use
  Company Number: GB-ROCHE-1159453

PATIENT
  Age: 35 Year
  Sex: Female
  Weight: 60.45 kg

DRUGS (6)
  1. BLINDED PERTUZUMAB [Suspect]
     Indication: BREAST CANCER METASTATIC
     Dosage: LOADING DOSE CYCLE 1?DATE OF LAST DOSE PRIOR TO SAE: 27/SEP/2012
     Route: 042
     Dates: start: 20120927
  2. BLINDED PERTUZUMAB [Suspect]
     Dosage: MAINTENANCE DOSE
     Route: 042
  3. TRASTUZUMAB [Suspect]
     Indication: BREAST CANCER METASTATIC
     Dosage: LOADING DOSE CYCLE 1, 493.5MG. ?DATE OF LAST DOSE PRIOR TO SAE: 27/SEP/2012
     Route: 042
     Dates: start: 20120927
  4. TRASTUZUMAB [Suspect]
     Route: 042
  5. DOCETAXEL [Suspect]
     Indication: BREAST CANCER METASTATIC
     Dosage: LAST DOSE PRIOR TO ADVERSE EVENT: 27/SEP/2012
     Route: 042
     Dates: start: 20120927
  6. DOCETAXEL [Suspect]
     Route: 042
     Dates: start: 20121026

REACTIONS (1)
  - Neutropenic sepsis [Unknown]
